APPROVED DRUG PRODUCT: CEFOBID
Active Ingredient: CEFOPERAZONE SODIUM
Strength: EQ 10GM BASE/VIAL
Dosage Form/Route: INJECTABLE;INJECTION
Application: N050551 | Product #003
Applicant: PFIZER LABORATORIES DIV PFIZER INC
Approved: Mar 5, 1990 | RLD: No | RS: No | Type: DISCN